FAERS Safety Report 9022083 (Version 1)
Quarter: 2013Q1

REPORT INFORMATION
  Report Type: Spontaneous
  Country: JP (occurrence: JP)
  Receive Date: 20130118
  Receipt Date: 20130118
  Transmission Date: 20140127
  Serious: Yes (Other)
  Sender: FDA-Public Use
  Company Number: JP-GLAXOSMITHKLINE-B0710400A

PATIENT
  Age: 39 None
  Sex: Female

DRUGS (5)
  1. PAXIL [Suspect]
     Indication: DEPRESSION
     Dosage: 30MG PER DAY
     Route: 048
  2. SHIGMABITAN [Concomitant]
     Indication: DEPRESSION
     Route: 048
  3. SEPAZON [Concomitant]
     Indication: DEPRESSION
     Dosage: 6MG THREE TIMES PER DAY
     Route: 048
  4. SEROQUEL [Concomitant]
     Indication: DEPRESSION
     Dosage: 25MG PER DAY
     Route: 048
  5. EURODIN [Concomitant]
     Indication: DEPRESSION
     Dosage: 2MG PER DAY
     Route: 048

REACTIONS (3)
  - Caesarean section [Unknown]
  - Premature labour [Unknown]
  - Exposure during pregnancy [Unknown]
